FAERS Safety Report 16780677 (Version 1)
Quarter: 2019Q3

REPORT INFORMATION
  Report Type: Spontaneous
  Country: DE (occurrence: DE)
  Receive Date: 20190906
  Receipt Date: 20190906
  Transmission Date: 20191005
  Serious: Yes (Other)
  Sender: FDA-Public Use
  Company Number: DE-MYLANLABS-2019M1083210

PATIENT
  Age: 71 Year
  Sex: Male

DRUGS (7)
  1. HUMIRA [Concomitant]
     Active Substance: ADALIMUMAB
     Indication: CROHN^S DISEASE
     Dosage: 40 MG, Q2W
     Route: 065
     Dates: start: 2012
  2. HUMIRA [Concomitant]
     Active Substance: ADALIMUMAB
     Dosage: 40 MILLIGRAM, QW
     Route: 065
     Dates: start: 201611
  3. AZATHIOPRINE. [Suspect]
     Active Substance: AZATHIOPRINE
     Dosage: 150 MG (2 MG/KG BODYWEIGHT)
     Route: 065
     Dates: start: 2011, end: 201210
  4. BUDESONIDE. [Concomitant]
     Active Substance: BUDESONIDE
     Indication: CROHN^S DISEASE
     Dosage: UNK
     Route: 065
     Dates: start: 201107
  5. HUMIRA [Concomitant]
     Active Substance: ADALIMUMAB
     Dosage: INDUCTION WITH 160 AND 80 MG IN WEEK 0 AND 2
     Route: 065
     Dates: start: 201210
  6. AZATHIOPRINE. [Suspect]
     Active Substance: AZATHIOPRINE
     Indication: CROHN^S DISEASE
     Dosage: UNK
     Route: 065
     Dates: start: 2016, end: 2016
  7. MERCAPTOPURINE. [Suspect]
     Active Substance: MERCAPTOPURINE
     Indication: CROHN^S DISEASE
     Dosage: UNK
     Route: 065
     Dates: start: 2016, end: 2016

REACTIONS (3)
  - Ileal stenosis [Recovered/Resolved]
  - Abdominal discomfort [Unknown]
  - Arthropathy [Unknown]

NARRATIVE: CASE EVENT DATE: 201107
